FAERS Safety Report 14478859 (Version 1)
Quarter: 2018Q1

REPORT INFORMATION
  Report Type: Spontaneous
  Country: US (occurrence: US)
  Receive Date: 20180202
  Receipt Date: 20180202
  Transmission Date: 20180509
  Serious: No
  Sender: FDA-Public Use
  Company Number: US-PFIZER INC-2018046158

PATIENT
  Sex: Female

DRUGS (1)
  1. LYRICA [Suspect]
     Active Substance: PREGABALIN
     Indication: TRIGEMINAL NEURALGIA
     Dosage: 150 MG (TWO CAPSULES), 2X/DAY MORNING AND NIGHT
     Route: 048

REACTIONS (2)
  - Arthritis [Not Recovered/Not Resolved]
  - Body height decreased [Unknown]
